FAERS Safety Report 4344784-X (Version None)
Quarter: 2004Q2

REPORT INFORMATION
  Report Type: 
  Country: None (occurrence: None)
  Receive Date: 20040420
  Receipt Date: 20040408
  Transmission Date: 20050107
  Serious: Yes (Hospitalization)
  Sender: FDA-Public Use
  Company Number: US-JNJFOC-20040401663

PATIENT
  Age: 50 Year
  Sex: Female

DRUGS (8)
  1. INFLIXIMAB (INFLIXIMAB, RECOMBINANT) LYOPHILIZED POWDER [Suspect]
     Indication: RHEUMATOID ARTHRITIS
     Dosage: 400 MG, 1 IN 8 WEEKS, INTRAVENOUS
     Route: 042
     Dates: start: 20030217
  2. MULTIVITAMIN (MUTIVITAMINS) [Concomitant]
  3. CALCIUM (CALCIUM) [Concomitant]
  4. FOLIC ACID [Concomitant]
  5. CELEBREX [Concomitant]
  6. METHOTREXATE [Concomitant]
  7. PREDNISONE [Concomitant]
  8. TYLENOL [Concomitant]

REACTIONS (2)
  - GASTROENTERITIS [None]
  - ILEUS [None]
